FAERS Safety Report 8854845 (Version 1)
Quarter: 2012Q4

REPORT INFORMATION
  Report Type: 
  Country: US (occurrence: US)
  Receive Date: 20121023
  Receipt Date: 20121023
  Transmission Date: 20130627
  Serious: Yes (Other)
  Sender: FDA-Public Use
  Company Number: PHEH2012US020540

PATIENT
  Sex: Male

DRUGS (5)
  1. DIOVAN HCT [Suspect]
     Dosage: 2 DF (160/12.5mg), daily
  2. NORVASC [Concomitant]
     Dosage: 2.5 mg, daily
  3. PRAVACOL [Concomitant]
     Dosage: 40 mg, daily
  4. METHOTREXATE [Concomitant]
     Dosage: 15 mg, QW
  5. PREDNISONE [Concomitant]
     Dosage: 2 mg, daily

REACTIONS (1)
  - Psoriatic arthropathy [Unknown]
